FAERS Safety Report 8605455 (Version 2)
Quarter: 2014Q3

REPORT INFORMATION
  Report Type: Spontaneous
  Country: US (occurrence: US)
  Receive Date: 20120608
  Receipt Date: 20140707
  Transmission Date: 20150326
  Serious: Yes (Death, Hospitalization)
  Sender: FDA-Public Use
  Company Number: US-GLAXOSMITHKLINE-A0892678A

PATIENT
  Sex: Male
  Weight: 79.1 kg

DRUGS (1)
  1. AVANDIA [Suspect]
     Active Substance: ROSIGLITAZONE MALEATE
     Indication: DIABETES MELLITUS
     Dosage: 8MG PER DAY
     Route: 048
     Dates: start: 20081028, end: 201005

REACTIONS (4)
  - Cardio-respiratory arrest [Fatal]
  - Cerebrovascular accident [Fatal]
  - Coronary artery disease [Unknown]
  - Coronary artery bypass [Unknown]
